FAERS Safety Report 5014000-4 (Version None)
Quarter: 2006Q2

REPORT INFORMATION
  Report Type: 
  Country: None (occurrence: None)
  Receive Date: 20060525
  Receipt Date: 20060517
  Transmission Date: 20061013
  Serious: Yes (Hospitalization)
  Sender: FDA-Public Use
  Company Number: HQWYE417122MAY06

PATIENT
  Age: 68 Year
  Sex: Male

DRUGS (11)
  1. MYLOTARG [Suspect]
     Indication: ACUTE MYELOID LEUKAEMIA RECURRENT
     Dosage: A SINGLE 9 MG/M^2 DOSE INTRAVENOUS DRIP
     Route: 041
     Dates: start: 20060328, end: 20060328
  2. MYLOTARG [Suspect]
     Indication: ACUTE MYELOID LEUKAEMIA RECURRENT
     Dosage: A SINGLE 9 MG/M^2 DOSE INTRAVENOUS DRIP
     Route: 041
     Dates: start: 20060411, end: 20060411
  3. MUCOSTA (REBAMIPIDE) [Concomitant]
  4. NEUQUINON (UBIDECARENONE) [Concomitant]
  5. LASIX [Concomitant]
  6. TARGOCID [Concomitant]
  7. SOLDACTONE (POTASSIUM CANRENOATE) [Concomitant]
  8. TIENAM (CILASTATIN/IMIPENEM) [Concomitant]
  9. FUNGUARD (MICAFUNGIN SODIUM) [Concomitant]
  10. SOLU-MEDROL [Concomitant]
  11. BASEN (VOGLIBOSE) [Concomitant]

REACTIONS (3)
  - FEBRILE NEUTROPENIA [None]
  - HYPERTENSION [None]
  - INTERSTITIAL LUNG DISEASE [None]
